FAERS Safety Report 7318519-2 (Version None)
Quarter: 2011Q1

REPORT INFORMATION
  Report Type: 
  Country: None (occurrence: None)
  Receive Date: 20110228
  Receipt Date: 20101129
  Transmission Date: 20110831
  Serious: No
  Sender: FDA-Public Use
  Company Number: US-BAYER-2010-007350

PATIENT
  Sex: Female

DRUGS (1)
  1. MIRENA [Suspect]
     Indication: CONTRACEPTION
     Dosage: 20 ?G/D, CONT
     Dates: start: 20101123

REACTIONS (3)
  - POST PROCEDURAL HAEMORRHAGE [None]
  - POST PROCEDURAL DISCHARGE [None]
  - DEVICE DISLOCATION [None]
